FAERS Safety Report 9039582 (Version 1)
Quarter: 2013Q1

REPORT INFORMATION
  Report Type: Report from Study
  Country: US (occurrence: US)
  Receive Date: 20130129
  Receipt Date: 20130129
  Transmission Date: 20140127
  Serious: No
  Sender: FDA-Public Use
  Company Number: US-ABBOTT-12P-163-0941911-00

PATIENT
  Age: 44 Year
  Sex: Female

DRUGS (4)
  1. HUMIRA 40 MG/0.8 ML PEN [Suspect]
     Indication: CROHN^S DISEASE
     Dates: start: 201111
  2. AGGRENOX [Concomitant]
     Indication: TRANSIENT ISCHAEMIC ATTACK
  3. AGGRENOX [Concomitant]
     Indication: ANTICOAGULANT THERAPY
  4. ZYRTEC [Concomitant]
     Indication: HYPERSENSITIVITY

REACTIONS (2)
  - Upper respiratory tract infection [Not Recovered/Not Resolved]
  - Ear infection [Not Recovered/Not Resolved]
